FAERS Safety Report 9580996 (Version 1)
Quarter: 2013Q4

REPORT INFORMATION
  Report Type: Spontaneous
  Country: US (occurrence: None)
  Receive Date: 20131001
  Receipt Date: 20131001
  Transmission Date: 20140711
  Serious: Yes (Other)
  Sender: FDA-Public Use
  Company Number: None

PATIENT
  Sex: Male
  Weight: 80.74 kg

DRUGS (6)
  1. ARESTIN [Suspect]
     Indication: INVESTIGATION
     Dosage: ONE MG MICROPHERES BASELINE VISIT 30 DAY VISIT 60 DAY 90 VISIT-180 DAY TREATMENT TO GUMS
     Dates: start: 20120807, end: 20130129
  2. LISINOPRIL/HCTZ [Concomitant]
  3. FELODIPINE [Concomitant]
  4. LATUDA [Concomitant]
  5. IBUPROFEN [Concomitant]
  6. CENTRUM SILVER VITAMINS [Concomitant]

REACTIONS (4)
  - Gingival pain [None]
  - Tooth loss [None]
  - Toothache [None]
  - Gingival swelling [None]
